FAERS Safety Report 5212244-X (Version None)
Quarter: 2006Q4

REPORT INFORMATION
  Report Type: 
  Country: None (occurrence: None)
  Receive Date: 20061130
  Receipt Date: 20060207
  Transmission Date: 20070319
  Serious: Yes (Other)
  Sender: FDA-Public Use
  Company Number: WAES 0602USA01525

PATIENT
  Age: 61 Year
  Sex: Male

DRUGS (2)
  1. FOSAMAX [Suspect]
     Indication: ARTHRITIS
     Dosage: 10 MG/BID/PO
     Route: 048
     Dates: start: 19990101, end: 20060206
  2. FOSAMAX [Suspect]
     Indication: OSTEOPOROSIS
     Dosage: 10 MG/BID/PO
     Route: 048
     Dates: start: 19990101, end: 20060206

REACTIONS (5)
  - INAPPROPRIATE SCHEDULE OF DRUG ADMINISTRATION [None]
  - LOOSE TOOTH [None]
  - OSTEONECROSIS [None]
  - OVERDOSE [None]
  - TOOTH DISORDER [None]
